FAERS Safety Report 10576131 (Version 1)
Quarter: 2014Q4

REPORT INFORMATION
  Report Type: Spontaneous
  Country: US (occurrence: None)
  Receive Date: 20141110
  Receipt Date: 20141110
  Transmission Date: 20150529
  Serious: No
  Sender: FDA-Public Use
  Company Number: None

PATIENT
  Age: 10 Year
  Sex: Male
  Weight: 33.34 kg

DRUGS (2)
  1. CEPHALEXIN. [Suspect]
     Active Substance: CEPHALEXIN
     Indication: TOOTH INFECTION
     Dosage: 1 CAPSULE ?THREE TIMES DAILY?TAKEN BY MOUTH
     Route: 048
     Dates: start: 20141104, end: 20141106
  2. CEPHALEXIN. [Suspect]
     Active Substance: CEPHALEXIN
     Indication: POST PROCEDURAL INFECTION
     Dosage: 1 CAPSULE ?THREE TIMES DAILY?TAKEN BY MOUTH
     Route: 048
     Dates: start: 20141104, end: 20141106

REACTIONS (7)
  - Homicidal ideation [None]
  - Discomfort [None]
  - Agitation [None]
  - Anger [None]
  - Belligerence [None]
  - Aggression [None]
  - Suicidal ideation [None]

NARRATIVE: CASE EVENT DATE: 20141104
